FAERS Safety Report 5233514-5 (Version None)
Quarter: 2007Q1

REPORT INFORMATION
  Report Type: 
  Country: None (occurrence: None)
  Receive Date: 20070208
  Receipt Date: 20070130
  Transmission Date: 20070707
  Serious: Yes (Hospitalization)
  Sender: FDA-Public Use
  Company Number: IE-ABBOTT-06P-229-0350433-00

PATIENT
  Age: 45 Year
  Sex: Female

DRUGS (2)
  1. KLACID [Suspect]
     Indication: RESPIRATORY TRACT INFECTION
     Route: 048
     Dates: start: 20060824, end: 20060831
  2. WARFARIN SODIUM CLATHRATE [Suspect]
     Indication: PULMONARY EMBOLISM
     Route: 048

REACTIONS (2)
  - HAEMOPTYSIS [None]
  - PROTHROMBIN LEVEL DECREASED [None]
